FAERS Safety Report 9451069 (Version 1)
Quarter: 2013Q3

REPORT INFORMATION
  Report Type: Spontaneous
  Country: US (occurrence: None)
  Receive Date: 20130807
  Receipt Date: 20130807
  Transmission Date: 20140515
  Serious: Yes (Death, Hospitalization)
  Sender: FDA-Public Use
  Company Number: IMP_06787_2013

PATIENT
  Age: 37 Year
  Sex: Male

DRUGS (8)
  1. METFORMIN [Suspect]
     Indication: PRODUCT USED FOR UNKNOWN INDICATION
  2. LISINOPRIL [Concomitant]
  3. MEETAMUCIL [Concomitant]
  4. COLACE [Concomitant]
  5. VALPROIC ACID [Concomitant]
  6. PALIPERIDONE [Concomitant]
  7. SIMVASTATIN [Concomitant]
  8. ASPIRIN [Concomitant]

REACTIONS (12)
  - Lactic acidosis [None]
  - Constipation [None]
  - Dizziness [None]
  - Vomiting [None]
  - Unresponsive to stimuli [None]
  - Agitation [None]
  - Blood pressure decreased [None]
  - Heart rate increased [None]
  - Haemodialysis [None]
  - Toxicity to various agents [None]
  - Dehydration [None]
  - Renal failure [None]
